FAERS Safety Report 5961189-6 (Version None)
Quarter: 2008Q4

REPORT INFORMATION
  Report Type: 
  Country: None (occurrence: None)
  Receive Date: 20081121
  Receipt Date: 20081110
  Transmission Date: 20090506
  Serious: No
  Sender: FDA-Public Use
  Company Number: US-BIOGENIDEC-2008BI021408

PATIENT
  Age: 54 Year
  Sex: Female
  Weight: 88 kg

DRUGS (3)
  1. TYSABRI [Suspect]
     Indication: MULTIPLE SCLEROSIS
     Route: 042
     Dates: start: 20080310
  2. EFFEXOR [Concomitant]
  3. MULTI-VITAMIN [Concomitant]

REACTIONS (3)
  - LYMPHOCYTOSIS [None]
  - SPLEEN PALPABLE [None]
  - THROMBOCYTOPENIA [None]
